FAERS Safety Report 23722983 (Version 1)
Quarter: 2024Q2

REPORT INFORMATION
  Report Type: Spontaneous
  Country: FR (occurrence: None)
  Receive Date: 20240409
  Receipt Date: 20240409
  Transmission Date: 20240715
  Serious: Yes (Death, Disabling)
  Sender: FDA-Public Use
  Company Number: 2024A084578

PATIENT
  Sex: Male

DRUGS (1)
  1. DURVALUMAB [Suspect]
     Active Substance: DURVALUMAB
     Indication: Bile duct cancer
     Dosage: UNKNOWN
     Route: 042

REACTIONS (3)
  - Cholangiocarcinoma [Fatal]
  - Colitis [Unknown]
  - Inappropriate schedule of product administration [Unknown]
